FAERS Safety Report 25439515 (Version 1)
Quarter: 2025Q2

REPORT INFORMATION
  Report Type: Spontaneous
  Country: US (occurrence: None)
  Receive Date: 20250613
  Receipt Date: 20250613
  Transmission Date: 20250717
  Serious: No
  Sender: FDA-CTU
  Company Number: None

PATIENT
  Age: 53 Year
  Sex: Female

DRUGS (1)
  1. DUPIXENT [Suspect]
     Active Substance: DUPILUMAB
     Indication: Oesophagitis
     Route: 058
     Dates: start: 20250328, end: 20250515

REACTIONS (4)
  - Injection site urticaria [None]
  - Injection site swelling [None]
  - Injection site rash [None]
  - Angioedema [None]

NARRATIVE: CASE EVENT DATE: 20250423
